FAERS Safety Report 14910432 (Version 5)
Quarter: 2020Q1

REPORT INFORMATION
  Report Type: Spontaneous
  Country: JP (occurrence: JP)
  Receive Date: 20180517
  Receipt Date: 20200221
  Transmission Date: 20200409
  Serious: Yes (Death, Life-Threatening, Other)
  Sender: FDA-Public Use
  Company Number: JP-BRISTOL-MYERS SQUIBB COMPANY-BMS-2018-044988

PATIENT
  Age: 56 Year
  Sex: Male
  Weight: 56.3 kg

DRUGS (1)
  1. OPDIVO [Suspect]
     Active Substance: NIVOLUMAB
     Indication: NON-SMALL CELL LUNG CANCER RECURRENT
     Dosage: 3 MILLIGRAM/KILOGRAM/DAY
     Route: 041
     Dates: start: 20180418, end: 20180418

REACTIONS (2)
  - Myocarditis [Fatal]
  - Myositis [Recovering/Resolving]

NARRATIVE: CASE EVENT DATE: 20180425
